FAERS Safety Report 10933231 (Version 2)
Quarter: 2015Q3

REPORT INFORMATION
  Report Type: Spontaneous
  Country: US (occurrence: US)
  Receive Date: 20150320
  Receipt Date: 20150826
  Transmission Date: 20151125
  Serious: Yes (Death, Hospitalization, Other)
  Sender: FDA-Public Use
  Company Number: US-MERCK-1503USA009613

PATIENT
  Sex: Male
  Weight: 113.38 kg

DRUGS (3)
  1. GLYBURIDE (+) METFORMIN HYDROCHLORIDE [Concomitant]
     Indication: TYPE 2 DIABETES MELLITUS
     Dosage: UNK
     Dates: start: 2004, end: 2013
  2. JANUVIA [Suspect]
     Active Substance: SITAGLIPTIN PHOSPHATE
     Indication: TYPE 2 DIABETES MELLITUS
     Dosage: 100 MG, QD
     Route: 048
     Dates: start: 20080525, end: 20130221
  3. JANUVIA [Suspect]
     Active Substance: SITAGLIPTIN PHOSPHATE
     Dosage: 50 MG, QD
     Route: 048
     Dates: start: 20110502, end: 20120828

REACTIONS (10)
  - Pneumonia [Unknown]
  - Atrial fibrillation [Unknown]
  - Death [Fatal]
  - Myasthenia gravis [Unknown]
  - Pancreatic insufficiency [Unknown]
  - Renal failure [Unknown]
  - Glaucoma [Unknown]
  - Pancreatitis [Unknown]
  - Pancreatic carcinoma [Unknown]
  - Febrile infection [Unknown]

NARRATIVE: CASE EVENT DATE: 2011
